FAERS Safety Report 6980346-3 (Version None)
Quarter: 2010Q3

REPORT INFORMATION
  Report Type: 
  Country: None (occurrence: None)
  Receive Date: 20100909
  Receipt Date: 20100826
  Transmission Date: 20110219
  Serious: Yes (Other)
  Sender: FDA-Public Use
  Company Number: JP-1183140

PATIENT
  Age: 69 Year
  Sex: Female

DRUGS (3)
  1. BSS PLUS [Suspect]
     Dosage: INTRAOCULAR
     Route: 031
     Dates: start: 20100817, end: 20100817
  2. BOSMIN (EPINEPHRINE HYDROCHLORIDE) [Concomitant]
  3. GASTRIPAN (MAGALDRATE) [Concomitant]

REACTIONS (3)
  - CORNEAL EROSION [None]
  - CORNEAL OEDEMA [None]
  - CORNEAL OPACITY [None]
